FAERS Safety Report 23705293 (Version 3)
Quarter: 2024Q2

REPORT INFORMATION
  Report Type: Spontaneous
  Country: BR (occurrence: BR)
  Receive Date: 20240404
  Receipt Date: 20240507
  Transmission Date: 20240715
  Serious: Yes (Life-Threatening)
  Sender: FDA-Public Use
  Company Number: BR-002147023-NVSC2024BR071600

PATIENT
  Sex: Female

DRUGS (3)
  1. DIOVAN HCT [Suspect]
     Active Substance: HYDROCHLOROTHIAZIDE\VALSARTAN
     Indication: Product used for unknown indication
     Dosage: 1 DOSAGE FORM (320/12.5 MG 28 TABLETS)
     Route: 065
  2. DIOVAN [Suspect]
     Active Substance: VALSARTAN
     Indication: Product used for unknown indication
     Dosage: 320 MG
     Route: 065
  3. HYDROCHLOROTHIAZIDE [Concomitant]
     Active Substance: HYDROCHLOROTHIAZIDE
     Indication: Product used for unknown indication
     Dosage: 25 MG
     Route: 065

REACTIONS (6)
  - Arrhythmia [Unknown]
  - Blood pressure abnormal [Unknown]
  - Peripheral swelling [Unknown]
  - Joint swelling [Unknown]
  - Feeling abnormal [Unknown]
  - Product availability issue [Unknown]
